FAERS Safety Report 8090182-5 (Version None)
Quarter: 2012Q1

REPORT INFORMATION
  Report Type: 
  Country: None (occurrence: None)
  Receive Date: 20120129
  Receipt Date: 20111022
  Transmission Date: 20120608
  Serious: No
  Sender: FDA-Public Use
  Company Number: US-ABBOTT-11P-163-0867451-00

PATIENT
  Age: 79 Year
  Sex: Female

DRUGS (9)
  1. ESTRADIOL [Concomitant]
     Indication: HORMONE REPLACEMENT THERAPY
  2. LEVOTHYROXINE SODIUM [Concomitant]
     Indication: HYPOTHYROIDISM
  3. FOLIC ACID [Concomitant]
     Indication: SUPPLEMENTATION THERAPY
  4. HYDROXYCHLOROQUINE SULFATE [Concomitant]
     Indication: RHEUMATOID ARTHRITIS
  5. HUMIRA [Suspect]
     Indication: RHEUMATOID ARTHRITIS
  6. OMEPRAZOLE [Concomitant]
     Indication: GASTROOESOPHAGEAL REFLUX DISEASE
  7. MAGE [Concomitant]
     Indication: PRODUCT USED FOR UNKNOWN INDICATION
  8. CALCIUM PLUS VIT D AND MULTIVITAMIN [Concomitant]
     Indication: VITAMIN SUPPLEMENTATION
  9. SULINDAC [Concomitant]
     Indication: ANTIINFLAMMATORY THERAPY

REACTIONS (2)
  - EPISTAXIS [None]
  - NASAL MUCOSAL DISCOLOURATION [None]
